FAERS Safety Report 5096563-6 (Version None)
Quarter: 2006Q3

REPORT INFORMATION
  Report Type: 
  Country: None (occurrence: None)
  Receive Date: 20060830
  Receipt Date: 20060821
  Transmission Date: 20061208
  Serious: Yes (Hospitalization)
  Sender: FDA-Public Use
  Company Number: 2006100625

PATIENT
  Sex: Male

DRUGS (1)
  1. ALDACTONE [Suspect]
     Indication: HEPATIC CIRRHOSIS
     Dosage: 20 MG (20 MG, 1 IN 1 D) ORAL
     Route: 048
     Dates: start: 20010101, end: 20060501

REACTIONS (5)
  - ABDOMINAL DISTENSION [None]
  - BREAST PAIN [None]
  - BREAST SWELLING [None]
  - HYPERSENSITIVITY [None]
  - LIBIDO DECREASED [None]
